FAERS Safety Report 4505778-4 (Version None)
Quarter: 2004Q4

REPORT INFORMATION
  Report Type: 
  Country: None (occurrence: None)
  Receive Date: 20041119
  Receipt Date: 20041108
  Transmission Date: 20050328
  Serious: Yes (Life-Threatening, Hospitalization, Other)
  Sender: FDA-Public Use
  Company Number: US-MERCK-0411USA01448

PATIENT
  Age: 74 Year
  Sex: Female

DRUGS (5)
  1. VIOXX [Suspect]
     Indication: ARTHRITIS
     Route: 048
     Dates: start: 19990101
  2. TOPROL-XL [Concomitant]
     Route: 065
  3. COUMADIN [Concomitant]
     Route: 065
  4. LASIX [Concomitant]
     Route: 065
  5. ANALGESIC OR ANESTHETIC (UNSPECIFIED) [Concomitant]
     Route: 065

REACTIONS (3)
  - ARTHRITIS [None]
  - CARDIAC DISORDER [None]
  - HAEMORRHAGE [None]
